FAERS Safety Report 21715708 (Version 4)
Quarter: 2023Q1

REPORT INFORMATION
  Report Type: Spontaneous
  Country: US (occurrence: US)
  Receive Date: 20221212
  Receipt Date: 20230116
  Transmission Date: 20230417
  Serious: Yes (Other)
  Sender: FDA-Public Use
  Company Number: US-PFIZER INC-202201361039

PATIENT
  Sex: Female
  Weight: 87.71 kg

DRUGS (3)
  1. PRISTIQ EXTENDED-RELEASE [Suspect]
     Active Substance: DESVENLAFAXINE SUCCINATE
     Dosage: UNK
  2. PRISTIQ EXTENDED-RELEASE [Suspect]
     Active Substance: DESVENLAFAXINE SUCCINATE
     Dosage: 100 MG, DAILY (STRENGTH: 50 MG, QUANTITY FOR 90 DAYS: 180)
  3. PRISTIQ EXTENDED-RELEASE [Suspect]
     Active Substance: DESVENLAFAXINE SUCCINATE
     Dosage: 2 DF, DAILY (2 TABS DAILY)
     Route: 048
     Dates: start: 20210422

REACTIONS (4)
  - Major depression [Not Recovered/Not Resolved]
  - Feeling abnormal [Unknown]
  - Depression [Unknown]
  - Pain [Unknown]

NARRATIVE: CASE EVENT DATE: 20180101
